FAERS Safety Report 16986250 (Version 1)
Quarter: 2019Q4

REPORT INFORMATION
  Report Type: Spontaneous
  Country: US (occurrence: US)
  Receive Date: 20190918
  Receipt Date: 20190918
  Transmission Date: 20200122
  Serious: Yes (Hospitalization)
  Sender: FDA-Public Use
  Company Number: None

PATIENT
  Age: 65 Year
  Sex: Male

DRUGS (1)
  1. SILDENAFIL 20 MG [Suspect]
     Active Substance: SILDENAFIL
     Indication: PULMONARY ARTERIAL HYPERTENSION
     Route: 048
     Dates: start: 20170923, end: 20190917

REACTIONS (4)
  - Ulcer [None]
  - Gastrooesophageal reflux disease [None]
  - Prostatomegaly [None]
  - Nephrolithiasis [None]

NARRATIVE: CASE EVENT DATE: 20190901
